FAERS Safety Report 9038291 (Version 2)
Quarter: 2015Q1

REPORT INFORMATION
  Report Type: Report from Study
  Country: US (occurrence: US)
  Receive Date: 20130129
  Receipt Date: 20150111
  Transmission Date: 20150721
  Serious: Yes (Death)
  Sender: FDA-Public Use
  Company Number: US-ROCHE-1183702

PATIENT
  Age: 75 Year
  Sex: Male

DRUGS (17)
  1. DECADRON [Concomitant]
     Active Substance: DEXAMETHASONE
     Route: 048
  2. TEGADERM [Concomitant]
     Active Substance: 2-HYDROXYETHYL METHACRYLATE
  3. CIPROFLOXACIN. [Concomitant]
     Active Substance: CIPROFLOXACIN
  4. EMCYT [Concomitant]
     Active Substance: ESTRAMUSTINE PHOSPHATE SODIUM
  5. ATIVAN [Concomitant]
     Active Substance: LORAZEPAM
     Dosage: 0.5MG
     Route: 042
  6. ALBUTEROL. [Concomitant]
     Active Substance: ALBUTEROL
     Dosage: 1EACH INHALATION
     Route: 065
  7. NORMAL SALINE [Concomitant]
     Active Substance: SODIUM CHLORIDE
  8. AVASTIN [Suspect]
     Active Substance: BEVACIZUMAB
     Indication: PROSTATE CANCER
     Route: 042
     Dates: start: 20100622
  9. BENADRYL [Concomitant]
     Active Substance: DIPHENHYDRAMINE HYDROCHLORIDE
     Route: 042
  10. TAXOTERE [Concomitant]
     Active Substance: DOCETAXEL
     Route: 042
  11. PALONOSETRON [Concomitant]
     Active Substance: PALONOSETRON
     Route: 042
  12. DECADRON [Concomitant]
     Active Substance: DEXAMETHASONE
     Route: 042
  13. DECADRON [Concomitant]
     Active Substance: DEXAMETHASONE
     Route: 042
  14. TAXOTERE [Concomitant]
     Active Substance: DOCETAXEL
     Route: 042
  15. ZOMETA [Concomitant]
     Active Substance: ZOLEDRONIC ACID
     Route: 042
  16. ALOXI [Concomitant]
     Active Substance: PALONOSETRON HYDROCHLORIDE
     Route: 042
  17. AVASTIN [Suspect]
     Active Substance: BEVACIZUMAB
     Route: 042

REACTIONS (2)
  - Off label use [Unknown]
  - Disease progression [Fatal]

NARRATIVE: CASE EVENT DATE: 20120819
